FAERS Safety Report 9470039 (Version 4)
Quarter: 2013Q4

REPORT INFORMATION
  Report Type: Spontaneous
  Country: US (occurrence: US)
  Receive Date: 20130822
  Receipt Date: 20131226
  Transmission Date: 20140711
  Serious: Yes (Other)
  Sender: FDA-Public Use
  Company Number: US-BAYER-2013-101316

PATIENT
  Age: 33 Year
  Sex: Female
  Weight: 63 kg

DRUGS (1)
  1. MIRENA [Suspect]
     Indication: CONTRACEPTION
     Dosage: 20 MCG/24HR, CONT
     Route: 015
     Dates: start: 20111021, end: 20130810

REACTIONS (5)
  - Post procedural haemorrhage [None]
  - Pregnancy with contraceptive device [None]
  - Amenorrhoea [None]
  - Drug ineffective [None]
  - Abortion spontaneous [None]
